FAERS Safety Report 14880062 (Version 3)
Quarter: 2018Q3

REPORT INFORMATION
  Report Type: Report from Study
  Country: KR (occurrence: KR)
  Receive Date: 20180511
  Receipt Date: 20180725
  Transmission Date: 20181010
  Serious: Yes (Hospitalization)
  Sender: FDA-Public Use
  Company Number: KR-CELGENEUS-KOR-20180501463

PATIENT
  Age: 65 Year
  Sex: Male

DRUGS (12)
  1. LEVODROPROPIZINE [Concomitant]
     Active Substance: LEVODROPROPIZINE
     Indication: COUGH
     Dosage: 9 TABLET
     Route: 048
     Dates: start: 20170913
  2. SPIRIVA [Concomitant]
     Active Substance: TIOTROPIUM BROMIDE MONOHYDRATE
     Indication: DYSPNOEA
     Dosage: 1 TABLET
     Route: 055
     Dates: start: 20170920
  3. DESOWEN [Concomitant]
     Active Substance: DESONIDE
     Indication: COUGH
     Route: 003
     Dates: start: 20171108
  4. MEDI4736 (DURVALUMAB) [Suspect]
     Active Substance: DURVALUMAB
     Indication: NON-SMALL CELL LUNG CANCER
     Dosage: 1500 MILLIGRAM
     Route: 041
     Dates: start: 20170906
  5. CHLORHEXIDINE GLUCONATE. [Concomitant]
     Active Substance: CHLORHEXIDINE GLUCONATE
     Indication: ORAL DISORDER
     Dosage: 60 MILLILITER
     Route: 002
     Dates: start: 20170913
  6. ULTRACET ER SEMI [Concomitant]
     Indication: PROPHYLAXIS
     Dosage: 6 TABLET
     Route: 048
     Dates: start: 20170906
  7. CODEINE PHOSPHATE [Concomitant]
     Active Substance: CODEINE PHOSPHATE
     Indication: COUGH
     Dosage: 90 MILLIGRAM
     Route: 048
     Dates: start: 20170913
  8. PREDNICARBATE. [Concomitant]
     Active Substance: PREDNICARBATE
     Indication: RASH
     Route: 061
     Dates: start: 20171101
  9. AMBROXOL HCL [Concomitant]
     Active Substance: AMBROXOL HYDROCHLORIDE
     Indication: COUGH
     Dosage: 3 TABLET
     Route: 048
     Dates: start: 20170906
  10. ABRAXANE [Suspect]
     Active Substance: PACLITAXEL
     Indication: NON-SMALL CELL LUNG CANCER
     Dosage: 100 MILLIGRAM/SQ. METER
     Route: 041
     Dates: start: 20170906, end: 20171122
  11. CARBOPLATIN. [Concomitant]
     Active Substance: CARBOPLATIN
     Indication: NON-SMALL CELL LUNG CANCER
     Dosage: 513.0 AUC
     Route: 042
     Dates: start: 20170906, end: 20171108
  12. SYNATURA [Concomitant]
     Indication: COUGH
     Dosage: 135 MILLILITER
     Route: 048
     Dates: start: 20171101

REACTIONS (1)
  - Pericardial effusion [Recovered/Resolved]

NARRATIVE: CASE EVENT DATE: 20180425
